FAERS Safety Report 15633265 (Version 1)
Quarter: 2018Q4

REPORT INFORMATION
  Report Type: Spontaneous
  Country: US (occurrence: US)
  Receive Date: 20181116
  Receipt Date: 20181116
  Transmission Date: 20190205
  Serious: Yes (Other)
  Sender: FDA-Public Use
  Company Number: None

PATIENT
  Age: 46 Year
  Sex: Male
  Weight: 61.23 kg

DRUGS (1)
  1. DALFAMPRIDINE ER 10MG MYLAN [Suspect]
     Active Substance: DALFAMPRIDINE
     Indication: RELAPSING-REMITTING MULTIPLE SCLEROSIS
     Route: 048
     Dates: start: 20181005

REACTIONS (4)
  - Drug ineffective [None]
  - Product substitution issue [None]
  - Muscular weakness [None]
  - Gait inability [None]

NARRATIVE: CASE EVENT DATE: 20181005
